FAERS Safety Report 9156725 (Version 1)
Quarter: 2013Q1

REPORT INFORMATION
  Report Type: Spontaneous
  Country: JP (occurrence: None)
  Receive Date: 20130206
  Receipt Date: 20130206
  Transmission Date: 20140127
  Serious: Yes (Hospitalization, Other)
  Sender: FDA-Public Use
  Company Number: ENT 2013-0021

PATIENT
  Sex: Female

DRUGS (3)
  1. COMTAN [Suspect]
     Route: 048
  2. EC DOPARL [Concomitant]
  3. MAGLAX [Concomitant]

REACTIONS (5)
  - Wrong technique in drug usage process [None]
  - Constipation [None]
  - Hip arthroplasty [None]
  - Cerebral infarction [None]
  - Oral mucosal discolouration [None]
